FAERS Safety Report 4898666-5 (Version None)
Quarter: 2006Q1

REPORT INFORMATION
  Report Type: 
  Country: None (occurrence: None)
  Receive Date: 20060202
  Receipt Date: 20050420
  Transmission Date: 20060701
  Serious: Yes (Hospitalization, Disabling)
  Sender: FDA-Public Use
  Company Number: BR-BOEHRINGER INGELHEIM PHARMACEUTICALS, INC.-2005-BP-06584BR

PATIENT
  Sex: Male

DRUGS (11)
  1. TIPRANAVIR / RITONAVIR CAPSULES [Suspect]
     Indication: HIV INFECTION
     Route: 048
     Dates: start: 20031015
  2. TENOFOVIR DISOPROXIL [Concomitant]
     Indication: HIV INFECTION
  3. RITONAVIR [Concomitant]
     Indication: HIV INFECTION
  4. ZYPREXA [Concomitant]
  5. DIDANOSINE [Concomitant]
     Indication: HIV INFECTION
  6. ABACAVIR [Concomitant]
     Indication: HIV INFECTION
  7. VIREAD [Concomitant]
     Indication: HIV INFECTION
  8. FLUCONAZOLE [Concomitant]
  9. PRAVASTATIN [Concomitant]
  10. AZYTHROMYCIN [Concomitant]
     Indication: HIV INFECTION
  11. COTRIM [Concomitant]
     Indication: HIV INFECTION

REACTIONS (6)
  - APHASIA [None]
  - CENTRAL NERVOUS SYSTEM LESION [None]
  - HYPERHIDROSIS [None]
  - NERVOUS SYSTEM DISORDER [None]
  - PYREXIA [None]
  - SOMNOLENCE [None]
